FAERS Safety Report 10704895 (Version 1)
Quarter: 2015Q1

REPORT INFORMATION
  Report Type: Spontaneous
  Country: US (occurrence: US)
  Receive Date: 20150112
  Receipt Date: 20150112
  Transmission Date: 20150721
  Serious: Yes (Hospitalization)
  Sender: FDA-Public Use
  Company Number: US-OTSUKA-US-2015-10060

PATIENT

DRUGS (3)
  1. NEXAVAR [Suspect]
     Active Substance: SORAFENIB
     Indication: ACUTE MYELOID LEUKAEMIA
     Dosage: 400 MG MILLIGRAM(S), BID
     Route: 048
     Dates: start: 20140811, end: 20141108
  2. VELCADE [Suspect]
     Active Substance: BORTEZOMIB
     Indication: ACUTE MYELOID LEUKAEMIA
     Dosage: 1.3 MG/M2, UNKNOWN
     Route: 058
     Dates: start: 20140811, end: 20141108
  3. DACOGEN [Suspect]
     Active Substance: DECITABINE
     Indication: ACUTE MYELOID LEUKAEMIA
     Dosage: 20 MG/M2,  IN 1 DAY ON DAYS 5-14
     Route: 042
     Dates: start: 20140811, end: 20141108

REACTIONS (3)
  - Dehydration [None]
  - Syncope [Recovered/Resolved]
  - Hypokalaemia [None]

NARRATIVE: CASE EVENT DATE: 20141212
